FAERS Safety Report 4816799-6 (Version None)
Quarter: 2005Q4

REPORT INFORMATION
  Report Type: 
  Country: None (occurrence: None)
  Receive Date: 20051031
  Receipt Date: 20051031
  Transmission Date: 20060501
  Serious: Yes (Hospitalization)
  Sender: FDA-Public Use
  Company Number: None

PATIENT
  Age: 64 Year
  Sex: Male
  Weight: 76.3 kg

DRUGS (9)
  1. SIMVASTATIN [Suspect]
     Indication: LIPIDS
     Dosage: 80 MG DAILY BID
     Dates: end: 20040901
  2. GEMFIBROZIL [Suspect]
     Indication: LIPIDS
     Dosage: BID
     Dates: start: 20050707, end: 20050801
  3. GEMFIBROZIL [Concomitant]
  4. ATENOLOL [Concomitant]
  5. OLANZAPINE [Concomitant]
  6. LISINOPRIL [Concomitant]
  7. SIMVASTATIN [Concomitant]
  8. LAMOTRIGINE [Concomitant]
  9. RISPERIDONE [Concomitant]

REACTIONS (2)
  - ASTHENIA [None]
  - MYOSITIS [None]
